FAERS Safety Report 9514796 (Version 2)
Quarter: 2014Q1

REPORT INFORMATION
  Report Type: Spontaneous
  Country: US (occurrence: None)
  Receive Date: 20130305
  Receipt Date: 20140306
  Transmission Date: 20141002
  Serious: Yes (Disabling, Other)
  Sender: FDA-Public Use
  Company Number: 163-21880-12102812

PATIENT
  Age: 63 Year
  Sex: Male

DRUGS (4)
  1. REVLIMID [Suspect]
     Indication: PLASMA CELL MYELOMA
     Dosage: 10 MG, 28 IN 28 D, PO
     Route: 048
     Dates: start: 201210
  2. RENATABS ( RENALTABS) (TABLETS) [Concomitant]
  3. RENVELA ( SEVELAMER CARBONATE) (TABLETS) [Concomitant]
  4. SODIUM BICARBONATE ( SODIUM BICARBONATE) [Concomitant]

REACTIONS (6)
  - Atrial fibrillation [None]
  - Neuropathy peripheral [None]
  - Dysgeusia [None]
  - Drug intolerance [None]
  - Adverse drug reaction [None]
  - Sensory loss [None]
